FAERS Safety Report 6916324-X (Version None)
Quarter: 2010Q3

REPORT INFORMATION
  Report Type: 
  Country: None (occurrence: None)
  Receive Date: 20100810
  Receipt Date: 20100729
  Transmission Date: 20110219
  Serious: Yes (Other)
  Sender: FDA-Public Use
  Company Number: IE-PFIZER INC-2010086861

PATIENT
  Age: 56 Year
  Sex: Female

DRUGS (4)
  1. CHAMPIX [Suspect]
     Indication: SMOKING CESSATION THERAPY
     Dosage: 1 DF, 2X/DAY
     Dates: start: 20100301, end: 20100701
  2. NEXIUM [Concomitant]
     Dosage: 40 MG, UNK
     Route: 048
  3. VENTOLIN [Concomitant]
     Dosage: UNK
     Route: 055
  4. AMILORIDE [Concomitant]
     Dosage: 10 MG, UNK

REACTIONS (6)
  - AGGRESSION [None]
  - ANGER [None]
  - ANXIETY [None]
  - DEPRESSED MOOD [None]
  - HOSTILITY [None]
  - IRRITABILITY [None]
